FAERS Safety Report 9859743 (Version 2)
Quarter: 2014Q1

REPORT INFORMATION
  Report Type: Report from Study
  Country: DE (occurrence: DE)
  Receive Date: 20140131
  Receipt Date: 20140228
  Transmission Date: 20141002
  Serious: Yes (Other)
  Sender: FDA-Public Use
  Company Number: DE-BRACCO-001587

PATIENT
  Age: 60 Year
  Sex: Female
  Weight: 66 kg

DRUGS (1)
  1. MULTIHANCE [Suspect]
     Indication: MAGNETIC RESONANCE CHOLANGIOPANCREATOGRAPHY
     Dosage: FROM 20ML VIAL, INJECTION RATE 3 ML/SEC
     Route: 042
     Dates: start: 20131203, end: 20131203

REACTIONS (1)
  - Asthma [Recovered/Resolved]
